FAERS Safety Report 10334821 (Version 5)
Quarter: 2016Q3

REPORT INFORMATION
  Report Type: Spontaneous
  Country: US (occurrence: US)
  Receive Date: 20140723
  Receipt Date: 20160715
  Transmission Date: 20161109
  Serious: Yes (Hospitalization, Disabling, Other)
  Sender: FDA-Public Use
  Company Number: US-009507513-1407USA008645

PATIENT
  Sex: Female

DRUGS (3)
  1. FOSAMAX [Suspect]
     Active Substance: ALENDRONATE SODIUM
     Indication: OSTEOPOROSIS
     Dosage: 70 MG, QW
     Route: 048
     Dates: start: 199903, end: 200504
  2. FOSAMAX PLUS D [Suspect]
     Active Substance: ALENDRONATE SODIUM\CHOLECALCIFEROL
     Indication: OSTEOPENIA
     Dosage: 70 MG, QW
     Route: 048
     Dates: start: 200504, end: 201004
  3. FOSAMAX [Suspect]
     Active Substance: ALENDRONATE SODIUM
     Indication: OSTEOPENIA

REACTIONS (26)
  - Hypothyroidism [Unknown]
  - Fall [Unknown]
  - Obesity [Unknown]
  - Femur fracture [Recovered/Resolved]
  - Acute kidney injury [Unknown]
  - Osteoporosis [Unknown]
  - Hypertension [Unknown]
  - Benign neoplasm of thyroid gland [Recovered/Resolved]
  - Pain in extremity [Unknown]
  - Fibromyalgia [Unknown]
  - Polypectomy [Unknown]
  - Haemorrhagic anaemia [Unknown]
  - Fall [Unknown]
  - Rotator cuff syndrome [Unknown]
  - Limb injury [Unknown]
  - Vitamin D deficiency [Unknown]
  - Knee operation [Unknown]
  - Serum ferritin decreased [Unknown]
  - Major depression [Unknown]
  - Bursitis [Unknown]
  - Arthrodesis [Unknown]
  - Postmenopausal haemorrhage [Unknown]
  - Deep vein thrombosis [Recovering/Resolving]
  - Diabetes mellitus [Unknown]
  - Pernicious anaemia [Unknown]
  - Arthralgia [Unknown]

NARRATIVE: CASE EVENT DATE: 1999
